FAERS Safety Report 9294051 (Version 1)
Quarter: 2013Q1

REPORT INFORMATION
  Report Type: Spontaneous
  Country: US (occurrence: None)
  Receive Date: 20121227
  Receipt Date: 20121227
  Transmission Date: 20140127
  Serious: No
  Sender: FDA-Public Use
  Company Number: PHEH2012US004077

PATIENT
  Age: 45 Year
  Sex: Male

DRUGS (3)
  1. CLOZARIL (CLOZAPINE) TABLET, 100MG [Suspect]
     Dosage: 500 MG (200MG IN THE MORNING AND 300MG AT NIGHT) ORAL
     Route: 048
  2. DEPAKOTE (VALPROATE SEMISODIUM) [Concomitant]
  3. CELEXA (CITALOPRAM HYDROBROMIDE) [Concomitant]

REACTIONS (2)
  - Obsessive-compulsive disorder [None]
  - Drooling [None]
